FAERS Safety Report 8292814-5 (Version None)
Quarter: 2012Q2

REPORT INFORMATION
  Report Type: 
  Country: None (occurrence: None)
  Receive Date: 20120417
  Receipt Date: 20111220
  Transmission Date: 20120825
  Serious: No
  Sender: FDA-Public Use
  Company Number: US-ASTRAZENECA-2011SE17756

PATIENT
  Age: 55 Year
  Sex: Male

DRUGS (4)
  1. HYDROCO [Concomitant]
  2. CYCLOBENZAPRINE HYDROCHLORIDE [Concomitant]
  3. NEXIUM [Suspect]
     Route: 048
  4. ZANTAC [Concomitant]

REACTIONS (6)
  - DYSPEPSIA [None]
  - ABDOMINAL PAIN UPPER [None]
  - DRUG DOSE OMISSION [None]
  - HEART RATE IRREGULAR [None]
  - MALAISE [None]
  - THERAPEUTIC RESPONSE UNEXPECTED [None]
